FAERS Safety Report 10213279 (Version 1)
Quarter: 2014Q2

REPORT INFORMATION
  Report Type: Report from Study
  Country: US (occurrence: None)
  Receive Date: 20140529
  Receipt Date: 20140529
  Transmission Date: 20141212
  Serious: Yes (Hospitalization)
  Sender: FDA-Public Use
  Company Number: 152651

PATIENT
  Sex: Female
  Weight: 90 kg

DRUGS (2)
  1. CYTARABINE [Suspect]
     Indication: ACUTE MYELOID LEUKAEMIA
     Dosage: (100MG/M2/DAY BY 24 HR CONTINUOUS INFUSION X 7 DAYS), DAY 1 THROUGH 7 OF CYCLE
  2. DAUNORUBICIN [Concomitant]

REACTIONS (7)
  - Enterocolitis [None]
  - Enterocolitis infectious [None]
  - Gastrointestinal necrosis [None]
  - Intestinal ischaemia [None]
  - Gastrointestinal toxicity [None]
  - Deep vein thrombosis [None]
  - Adhesion [None]
